FAERS Safety Report 11995898 (Version 3)
Quarter: 2016Q1

REPORT INFORMATION
  Report Type: Spontaneous
  Country: AR (occurrence: AR)
  Receive Date: 20160203
  Receipt Date: 20160318
  Transmission Date: 20160526
  Serious: Yes (Other)
  Sender: FDA-Public Use
  Company Number: PHHY2016AR013385

PATIENT
  Age: 5 Year
  Sex: Female
  Weight: 20.6 kg

DRUGS (2)
  1. ILARIS [Suspect]
     Active Substance: CANAKINUMAB
     Dosage: 5 MG/KG, QD
     Route: 058
     Dates: start: 201502, end: 20151127
  2. ILARIS [Suspect]
     Active Substance: CANAKINUMAB
     Indication: JUVENILE IDIOPATHIC ARTHRITIS
     Dosage: 4 MG/KG, QD
     Route: 058
     Dates: start: 20140905, end: 201502

REACTIONS (8)
  - Lung infiltration [Not Recovered/Not Resolved]
  - Pulmonary mass [Not Recovered/Not Resolved]
  - Pyrexia [Not Recovered/Not Resolved]
  - Pneumonia lipoid [Unknown]
  - Cholesterol granuloma [Unknown]
  - Cough [Not Recovered/Not Resolved]
  - Histiocytosis haematophagic [Not Recovered/Not Resolved]
  - Alveolar proteinosis [Unknown]

NARRATIVE: CASE EVENT DATE: 201411
